FAERS Safety Report 7313751-6 (Version None)
Quarter: 2011Q1

REPORT INFORMATION
  Report Type: 
  Country: None (occurrence: None)
  Receive Date: 20110218
  Receipt Date: 20110218
  Transmission Date: 20110831
  Serious: Yes (Life-Threatening)
  Sender: FDA-Public Use
  Company Number: None

PATIENT
  Sex: Female

DRUGS (1)
  1. PROMETHAZINE [Suspect]
     Dosage: 25 MG IV
     Route: 042

REACTIONS (2)
  - STRIDOR [None]
  - UNRESPONSIVE TO STIMULI [None]
